FAERS Safety Report 6836387-X (Version None)
Quarter: 2010Q3

REPORT INFORMATION
  Report Type: 
  Country: None (occurrence: None)
  Receive Date: 20100713
  Receipt Date: 20100630
  Transmission Date: 20110219
  Serious: Yes (Hospitalization, Other)
  Sender: FDA-Public Use
  Company Number: US-ELI_LILLY_AND_COMPANY-US201007000323

PATIENT
  Sex: Female

DRUGS (2)
  1. ZYPREXA [Suspect]
     Indication: SLEEP DISORDER
     Dosage: 5 MG, DAILY (1/D)
     Dates: start: 20100530
  2. CHEMOTHERAPEUTICS [Concomitant]

REACTIONS (6)
  - COGNITIVE DISORDER [None]
  - DIABETIC COMA [None]
  - DIABETIC NEUROPATHY [None]
  - OFF LABEL USE [None]
  - PERONEAL NERVE PALSY [None]
  - RENAL FAILURE [None]
